FAERS Safety Report 8888977 (Version 4)
Quarter: 2014Q3

REPORT INFORMATION
  Report Type: Report from Study
  Country: BR (occurrence: BR)
  Receive Date: 20121106
  Receipt Date: 20140727
  Transmission Date: 20150326
  Serious: Yes (Death, Hospitalization)
  Sender: FDA-Public Use
  Company Number: PHHO2012BR004666

PATIENT
  Age: 81 Year
  Sex: Male
  Weight: 63.6 kg

DRUGS (1)
  1. ALISKIREN [Suspect]
     Active Substance: ALISKIREN
     Indication: CARDIAC FAILURE
     Dosage: UNK
     Route: 048
     Dates: start: 20110801, end: 20120308

REACTIONS (3)
  - Cardiac failure [Recovered/Resolved]
  - Cardiac death [Fatal]
  - Hypotension [Recovered/Resolved]

NARRATIVE: CASE EVENT DATE: 20120308
